FAERS Safety Report 4767983-1 (Version None)
Quarter: 2005Q3

REPORT INFORMATION
  Report Type: 
  Country: None (occurrence: None)
  Receive Date: 20050912
  Receipt Date: 20050831
  Transmission Date: 20060218
  Serious: Yes (Other)
  Sender: FDA-Public Use
  Company Number: US-2005-018154

PATIENT
  Age: 51 Year
  Sex: Male
  Weight: 104.3 kg

DRUGS (6)
  1. BETASERON [Suspect]
     Indication: RELAPSING-REMITTING MULTIPLE SCLEROSIS
     Dosage: SEE IMAGE
     Route: 058
     Dates: start: 20010101, end: 20040101
  2. BETASERON [Suspect]
     Indication: RELAPSING-REMITTING MULTIPLE SCLEROSIS
     Dosage: SEE IMAGE
     Route: 058
     Dates: start: 20050420
  3. BETASERON [Suspect]
  4. NORCO (HYDROCODONE BITARTRATE) [Concomitant]
  5. BACLOFEN [Concomitant]
  6. TEMAZEPAM [Concomitant]

REACTIONS (1)
  - COCCIDIOIDOMYCOSIS [None]
